FAERS Safety Report 12079941 (Version 2)
Quarter: 2016Q1

REPORT INFORMATION
  Report Type: Spontaneous
  Country: US (occurrence: US)
  Receive Date: 20160216
  Receipt Date: 20160218
  Transmission Date: 20160526
  Serious: No
  Sender: FDA-Public Use
  Company Number: US-PFIZER INC-2016079038

PATIENT
  Age: 87 Year
  Sex: Female

DRUGS (1)
  1. IBRANCE [Suspect]
     Active Substance: PALBOCICLIB
     Dosage: 125 MG, UNK
     Dates: start: 20150808, end: 20151125

REACTIONS (3)
  - Cough [Unknown]
  - Fatigue [Unknown]
  - Skin mass [Unknown]

NARRATIVE: CASE EVENT DATE: 201601
